FAERS Safety Report 5309794-4 (Version None)
Quarter: 2007Q2

REPORT INFORMATION
  Report Type: 
  Country: None (occurrence: None)
  Receive Date: 20070427
  Receipt Date: 20060407
  Transmission Date: 20071010
  Serious: No
  Sender: FDA-Public Use
  Company Number: US-GLAXOSMITHKLINE-A0600928A

PATIENT
  Age: 41 Year
  Sex: Male

DRUGS (9)
  1. ZOFRAN [Suspect]
     Indication: PROPHYLAXIS OF NAUSEA AND VOMITING
     Dosage: 8MG FOUR TIMES PER DAY
     Route: 048
     Dates: start: 20040101
  2. PHENERGAN HCL [Concomitant]
  3. TRILEPTAL [Concomitant]
  4. TRAZODONE HCL [Concomitant]
  5. DILAUDID [Concomitant]
  6. UNKNOWN MEDICATION [Concomitant]
  7. CLONIDINE [Concomitant]
  8. NEXIUM [Concomitant]
  9. LORTAB [Concomitant]

REACTIONS (7)
  - AMNESIA [None]
  - CONSTIPATION [None]
  - DRUG ADMINISTRATION ERROR [None]
  - DRUG INEFFECTIVE [None]
  - HIATUS HERNIA [None]
  - OEDEMA PERIPHERAL [None]
  - ULCER [None]
